FAERS Safety Report 15719088 (Version 1)
Quarter: 2018Q4

REPORT INFORMATION
  Report Type: Spontaneous
  Country: SE (occurrence: SE)
  Receive Date: 20181213
  Receipt Date: 20181213
  Transmission Date: 20190205
  Serious: Yes (Hospitalization)
  Sender: FDA-Public Use
  Company Number: SE-BIOVITRUM-2013SE0126

PATIENT
  Age: 1 Year
  Sex: Male
  Weight: 8 kg

DRUGS (1)
  1. KINERET [Suspect]
     Active Substance: ANAKINRA
     Indication: DEFICIENCY OF THE INTERLEUKIN-1 RECEPTOR ANTAGONIST
     Route: 058
     Dates: start: 20081113, end: 20081201

REACTIONS (7)
  - Rash pruritic [Recovered/Resolved]
  - Pneumonia [Unknown]
  - Neutralising antibodies positive [Unknown]
  - Anaphylactic reaction [Recovered/Resolved]
  - Drug ineffective for unapproved indication [Unknown]
  - Urticaria [Recovered/Resolved]
  - Drug specific antibody [Unknown]

NARRATIVE: CASE EVENT DATE: 20081124
